FAERS Safety Report 4511606-3 (Version None)
Quarter: 2004Q4

REPORT INFORMATION
  Report Type: 
  Country: None (occurrence: None)
  Receive Date: 20041129
  Receipt Date: 20041014
  Transmission Date: 20050328
  Serious: No
  Sender: FDA-Public Use
  Company Number: US-BRISTOL-MYERS SQUIBB COMPANY-12732491

PATIENT
  Age: 51 Year
  Sex: Male

DRUGS (2)
  1. ABILIFY [Suspect]
     Indication: SCHIZOPHRENIA
     Dosage: INITIATED AT 10 MG/DAY, INC TO 15 MG/DAY AFTER 1 WEEK, DECREASED TO 5 MG/DAY
     Route: 048
     Dates: start: 20040918
  2. LEXAPRO [Concomitant]

REACTIONS (1)
  - TARDIVE DYSKINESIA [None]
